FAERS Safety Report 10577033 (Version 1)
Quarter: 2014Q4

REPORT INFORMATION
  Report Type: Spontaneous
  Country: US (occurrence: US)
  Receive Date: 20141111
  Receipt Date: 20141111
  Transmission Date: 20150529
  Serious: Yes (Disabling)
  Sender: FDA-Public Use
  Company Number: US-PFIZER INC-2014307776

PATIENT
  Age: 55 Year
  Sex: Female
  Weight: 98 kg

DRUGS (2)
  1. LYRICA [Suspect]
     Active Substance: PREGABALIN
     Indication: FIBROMYALGIA
     Dosage: 300 MG, UNK
  2. TRAZODONE [Concomitant]
     Active Substance: TRAZODONE HYDROCHLORIDE
     Dosage: 150 MG, UNK

REACTIONS (10)
  - Burning sensation [Unknown]
  - Panic attack [Unknown]
  - Speech disorder [Unknown]
  - Skin discolouration [Unknown]
  - Fibromyalgia [Unknown]
  - Malaise [Unknown]
  - Pain in extremity [Unknown]
  - Erythema [Unknown]
  - Anxiety [Unknown]
  - Feeling hot [Unknown]
